FAERS Safety Report 15841286 (Version 1)
Quarter: 2019Q1

REPORT INFORMATION
  Report Type: Spontaneous
  Country: GB (occurrence: GB)
  Receive Date: 20190118
  Receipt Date: 20190118
  Transmission Date: 20190417
  Serious: Yes (Disabling)
  Sender: FDA-Public Use
  Company Number: GB-ORION CORPORATION ORION PHARMA-19_00005218

PATIENT
  Age: 78 Year
  Sex: Male
  Weight: 102 kg

DRUGS (12)
  1. PROPRANOLOL [Concomitant]
     Active Substance: PROPRANOLOL HYDROCHLORIDE
     Dosage: TAKE ONE UP TO 3 TIMES/DAY
     Route: 065
     Dates: start: 20181213
  2. AMOXICILLIN. [Concomitant]
     Active Substance: AMOXICILLIN
     Dosage: CUMULATIVE DOSE- 312.125 DOSAGE FORM
     Route: 065
     Dates: start: 20180918, end: 20180920
  3. GABAPENTIN. [Concomitant]
     Active Substance: GABAPENTIN
     Dosage: TO USE INCREASING  DOSE TO 600 MG TDS EVENTUALL...
     Route: 065
     Dates: start: 20180618
  4. FOLIC ACID. [Concomitant]
     Active Substance: FOLIC ACID
     Dosage: EXCEPT ON THE DAY THAT TH...
     Route: 065
     Dates: start: 20180712
  5. DIAZEPAM. [Concomitant]
     Active Substance: DIAZEPAM
     Dosage: ONE OR TWO TABLET TO BE TAKEN WHEN NEEDED, UPTO, AS NECESSARY
     Route: 065
     Dates: start: 20181214, end: 20181218
  6. PREDNISOLONE. [Concomitant]
     Active Substance: PREDNISOLONE
     Dosage: IN THE MORNING EVERY DAY FOR ONE WEEK, CUMULATIVE DOSE- 1032.25 DOSAGE FORM
     Route: 065
     Dates: start: 20180712
  7. METHOTREXATE (TRADE NAME UNKNOWN) [Suspect]
     Active Substance: METHOTREXATE
     Indication: PRODUCT USED FOR UNKNOWN INDICATION
     Dosage: 20MG (EIGHT TABLETS), CUMULATIVE DOSE- 468.6905 MG
     Route: 065
     Dates: start: 20180720, end: 20181231
  8. LEVOTHYROXINE. [Concomitant]
     Active Substance: LEVOTHYROXINE
     Dosage: CUMULATIVE DOSE- 196.04167 DOSAGE FORM
     Route: 065
     Dates: start: 20180618
  9. PARACETAMOL [Concomitant]
     Active Substance: ACETAMINOPHEN
     Indication: PAIN
     Dosage: AS NECESSARY
     Route: 065
     Dates: start: 20170519
  10. AMITRIPTYLINE HYDROCHLORIDE. [Concomitant]
     Active Substance: AMITRIPTYLINE HYDROCHLORIDE
     Dosage: NIGHTLY, CUMULATIVE DOSE- 196.04167 DOSAGE FORM
     Route: 065
     Dates: start: 20180618
  11. CODEINE PHOSPHATE [Concomitant]
     Active Substance: CODEINE PHOSPHATE
     Dosage: 1-2 WHEN REQUIRED, IF REQUIRED, AS NECESSARY
     Route: 065
     Dates: start: 20161024
  12. RANITIDINE. [Concomitant]
     Active Substance: RANITIDINE
     Dosage: CUMULATIVE DOSE- 1182.0834 DOSAGE FORM
     Route: 065
     Dates: start: 20170519

REACTIONS (2)
  - Anxiety [Unknown]
  - Panic disorder [Recovering/Resolving]

NARRATIVE: CASE EVENT DATE: 20181231
